FAERS Safety Report 5280581-9 (Version None)
Quarter: 2007Q1

REPORT INFORMATION
  Report Type: 
  Country: None (occurrence: None)
  Receive Date: 20070329
  Receipt Date: 20070313
  Transmission Date: 20070707
  Serious: Yes (Death)
  Sender: FDA-Public Use
  Company Number: 2007AP01555

PATIENT
  Age: 52 Year
  Sex: Female

DRUGS (3)
  1. MERONEM [Suspect]
     Indication: MENINGITIS
     Route: 042
     Dates: start: 20070212, end: 20070303
  2. VANCOMYCIN [Concomitant]
     Indication: MENINGITIS
  3. CEFTAZIDIME [Concomitant]
     Indication: MENINGITIS

REACTIONS (7)
  - GENERAL PHYSICAL HEALTH DETERIORATION [None]
  - LOSS OF CONSCIOUSNESS [None]
  - MULTI-ORGAN FAILURE [None]
  - NOSOCOMIAL INFECTION [None]
  - PNEUMONIA [None]
  - POOR QUALITY DRUG ADMINISTERED [None]
  - SEPSIS [None]
